FAERS Safety Report 10241934 (Version 1)
Quarter: 2014Q2

REPORT INFORMATION
  Report Type: Spontaneous
  Country: US (occurrence: None)
  Receive Date: 20140613
  Receipt Date: 20140613
  Transmission Date: 20141212
  Serious: Yes (Other)
  Sender: FDA-Public Use
  Company Number: ADR-2014-00997

PATIENT
  Age: 61 Year
  Sex: Male

DRUGS (4)
  1. COMPOUNDED BACLOFEN INTRATHECAL [Suspect]
     Dates: start: 20121116
  2. DILAUDID 10MG/ML [Suspect]
     Dates: start: 20121116
  3. BUPIVACAINE [Suspect]
     Dates: start: 20121116
  4. OXYCODONE [Suspect]

REACTIONS (6)
  - Dizziness [None]
  - Overdose [None]
  - Implant site extravasation [None]
  - Device failure [None]
  - Feeling drunk [None]
  - Feeling abnormal [None]
